FAERS Safety Report 8516039-0 (Version None)
Quarter: 2012Q3

REPORT INFORMATION
  Report Type: 
  Country: None (occurrence: None)
  Receive Date: 20120717
  Receipt Date: 20120426
  Transmission Date: 20120928
  Serious: No
  Sender: FDA-Public Use
  Company Number: US-NOVEN-12US004546

PATIENT
  Age: 31 Year
  Sex: Female

DRUGS (1)
  1. FENTANYL [Suspect]
     Indication: BACK PAIN
     Dosage: 50 UG/HR, EVERY 72 HOURS
     Route: 062
     Dates: start: 20120101

REACTIONS (3)
  - HYPERHIDROSIS [None]
  - INADEQUATE ANALGESIA [None]
  - PRODUCT QUALITY ISSUE [None]
